FAERS Safety Report 11238663 (Version 2)
Quarter: 2015Q3

REPORT INFORMATION
  Report Type: Spontaneous
  Country: JP (occurrence: JP)
  Receive Date: 20150706
  Receipt Date: 20150804
  Transmission Date: 20151125
  Serious: Yes (Hospitalization, Other)
  Sender: FDA-Public Use
  Company Number: PHJP2015JP010924

PATIENT
  Age: 38 Year
  Sex: Male
  Weight: 132 kg

DRUGS (3)
  1. MINOMYCIN [Concomitant]
     Active Substance: MINOCYCLINE HYDROCHLORIDE
     Indication: PYREXIA
     Route: 065
  2. CLARITH [Concomitant]
     Active Substance: CLARITHROMYCIN
     Indication: PYREXIA
     Route: 065
  3. VOLTAREN [Suspect]
     Active Substance: DICLOFENAC SODIUM
     Indication: PYREXIA
     Dosage: UNK
     Route: 065
     Dates: start: 200804

REACTIONS (7)
  - Oedema peripheral [Unknown]
  - Movement disorder [Unknown]
  - Generalised oedema [Unknown]
  - Diabetic nephropathy [Unknown]
  - Scrotal oedema [Unknown]
  - Malaise [Unknown]
  - Pain [Unknown]

NARRATIVE: CASE EVENT DATE: 200804
